FAERS Safety Report 7170809-2 (Version None)
Quarter: 2010Q4

REPORT INFORMATION
  Report Type: 
  Country: None (occurrence: None)
  Receive Date: 20101217
  Receipt Date: 20101213
  Transmission Date: 20110411
  Serious: Yes (Hospitalization)
  Sender: FDA-Public Use
  Company Number: GR-ELI_LILLY_AND_COMPANY-GR201012001744

PATIENT
  Sex: Male
  Weight: 90 kg

DRUGS (5)
  1. GEMCITABINE HCL [Suspect]
     Indication: NON-SMALL CELL LUNG CANCER STAGE IV
     Dosage: 2500 MG, UNK
     Dates: start: 20101201, end: 20101208
  2. CISPLATIN [Suspect]
     Indication: NON-SMALL CELL LUNG CANCER STAGE IV
     Dosage: 150 MG, UNK
     Dates: start: 20101201
  3. MIFLONIDE [Concomitant]
     Route: 055
     Dates: start: 20100901
  4. FORADIL [Concomitant]
     Route: 055
     Dates: start: 20100901
  5. SPIRIVA [Concomitant]
     Route: 055
     Dates: start: 20100901

REACTIONS (1)
  - RESPIRATORY TRACT INFECTION [None]
